FAERS Safety Report 6692398-9 (Version None)
Quarter: 2010Q2

REPORT INFORMATION
  Report Type: 
  Country: None (occurrence: None)
  Receive Date: 20100413
  Receipt Date: 20100402
  Transmission Date: 20101027
  Serious: Yes (Other)
  Sender: FDA-Public Use
  Company Number: THYM-1001294

PATIENT
  Age: 52 Year
  Sex: Male
  Weight: 49 kg

DRUGS (22)
  1. THYMOGLOBULIN [Suspect]
     Indication: PROPHYLAXIS AGAINST TRANSPLANT REJECTION
     Dosage: 75 MG, QD, INTRAVENOUS; 1.5 MG/KG, QD, INTRAVENOUS
     Route: 042
     Dates: start: 20091021, end: 20091022
  2. THYMOGLOBULIN [Suspect]
     Indication: PROPHYLAXIS AGAINST TRANSPLANT REJECTION
     Dosage: 75 MG, QD, INTRAVENOUS; 1.5 MG/KG, QD, INTRAVENOUS
     Route: 042
     Dates: start: 20091024, end: 20091025
  3. CELLCEPT [Concomitant]
  4. SOLUPRED (PREDNISOLONE SODIUM SULFOBENZOATE) [Concomitant]
  5. AMLODIPINE BESYLATE [Concomitant]
  6. POLARAMINE [Concomitant]
  7. SOLU-MEDROL [Concomitant]
  8. OMEPRAZOLE [Concomitant]
  9. BISOPROLOL FUMARATE [Concomitant]
  10. EUPRESSYL (URAPIDIL) [Concomitant]
  11. FOLIC ACID [Concomitant]
  12. SODIUM BICARBONATE IN PLASTIC CONTAINER [Concomitant]
  13. HYPERIUM (RILMENIDINE) [Concomitant]
  14. OROCAL (CALCIUM CARBONATE) [Concomitant]
  15. FERO-GRAD (FERROUS SULFATE) [Concomitant]
  16. KARDEGIC (ACETYLSALICYLATE LYSINE, ACETYLSALICYLIC ACID) [Concomitant]
  17. ATENOLOL [Concomitant]
  18. UN-ALFA (ALFACALCIDOL) [Concomitant]
  19. TOCOPHEROL CONCENTRATE CAP [Concomitant]
  20. CALCIUM (CALCIUM) [Concomitant]
  21. PERINDOPRIL ERBUMINE [Concomitant]
  22. SODIUM BICARBONATE IN PLASTIC CONTAINER [Concomitant]

REACTIONS (3)
  - DYSPNOEA [None]
  - HAEMOGLOBIN DECREASED [None]
  - HYPERTHERMIA [None]
